FAERS Safety Report 7438436-7 (Version None)
Quarter: 2011Q2

REPORT INFORMATION
  Report Type: 
  Country: None (occurrence: None)
  Receive Date: 20110426
  Receipt Date: 20110408
  Transmission Date: 20111010
  Serious: Yes (Other)
  Sender: FDA-Public Use
  Company Number: US-ASTELLAS-2011US001515

PATIENT

DRUGS (2)
  1. TACROLIMUS [Suspect]
     Dosage: UNK, UID/QD
     Route: 065
  2. TACROLIMUS [Suspect]
     Indication: RENAL TRANSPLANT
     Dosage: UNK, BID
     Route: 065

REACTIONS (1)
  - RENAL GRAFT LOSS [None]
